FAERS Safety Report 10004963 (Version 2)
Quarter: 2014Q1

REPORT INFORMATION
  Report Type: Spontaneous
  Country: US (occurrence: US)
  Receive Date: 20140312
  Receipt Date: 20140312
  Transmission Date: 20141002
  Serious: No
  Sender: FDA-Public Use
  Company Number: US-GILEAD-2012-0064610

PATIENT
  Sex: Male

DRUGS (1)
  1. LETAIRIS [Suspect]
     Indication: COR PULMONALE CHRONIC
     Dosage: 5 MG, QD
     Route: 048
     Dates: start: 20120828

REACTIONS (6)
  - Chest pain [Unknown]
  - Oedema [Unknown]
  - Fluid retention [Unknown]
  - Abdominal pain upper [Unknown]
  - Palpitations [Unknown]
  - No therapeutic response [Unknown]
